FAERS Safety Report 5334410-5 (Version None)
Quarter: 2007Q2

REPORT INFORMATION
  Report Type: 
  Country: None (occurrence: None)
  Receive Date: 20070525
  Receipt Date: 20070516
  Transmission Date: 20071010
  Serious: Yes (Hospitalization)
  Sender: FDA-Public Use
  Company Number: CA-JNJFOC-20070100790

PATIENT
  Sex: Female
  Weight: 93 kg

DRUGS (2)
  1. REMICADE [Suspect]
     Indication: RHEUMATOID ARTHRITIS
     Dosage: TOTAL OF 36 DOSES ON UNKNOWN DATES.
     Route: 042
  2. PREDNISONE TAB [Concomitant]
     Indication: RHEUMATOID ARTHRITIS
     Dosage: DATES OF THERAPY: ^CHRONIC USE^
     Route: 048

REACTIONS (3)
  - DEHYDRATION [None]
  - ELECTROLYTE IMBALANCE [None]
  - NASOPHARYNGITIS [None]
